FAERS Safety Report 8323155-5 (Version None)
Quarter: 2012Q1

REPORT INFORMATION
  Report Type: 
  Country: None (occurrence: None)
  Receive Date: 20120315
  Receipt Date: 20110608
  Transmission Date: 20120608
  Serious: No
  Sender: FDA-Public Use
  Company Number: PHHY2011US23436

PATIENT
  Age: 64 Year
  Sex: Female
  Weight: 88.4 kg

DRUGS (3)
  1. TYLENOL ARTHRITIS (PARACETAMOL) [Concomitant]
  2. GILENYA [Suspect]
     Indication: MULTIPLE SCLEROSIS
     Dosage: 0.5 MG, QD, ORAL
     Route: 048
     Dates: start: 20110322, end: 20110422
  3. IBUPROFEN [Concomitant]

REACTIONS (2)
  - SKIN REACTION [None]
  - VISUAL IMPAIRMENT [None]
